FAERS Safety Report 7898830-7 (Version None)
Quarter: 2011Q4

REPORT INFORMATION
  Report Type: 
  Country: None (occurrence: None)
  Receive Date: 20111107
  Receipt Date: 20111103
  Transmission Date: 20120403
  Serious: Yes (Congenital Anomaly)
  Sender: FDA-Public Use
  Company Number: FR-GILEAD-2011-0045617

PATIENT
  Sex: Male

DRUGS (5)
  1. KALETRA [Concomitant]
     Dosage: UNK
     Route: 064
     Dates: end: 20080801
  2. RETROVIR [Concomitant]
  3. TRUVADA [Suspect]
     Indication: HIV INFECTION
     Dosage: 1 DF, QD
     Route: 064
     Dates: start: 20080809
  4. INVIRASE [Concomitant]
     Dosage: UNK
     Route: 064
     Dates: start: 20080809
  5. KIVEXA [Concomitant]
     Route: 064

REACTIONS (2)
  - PENILE CURVATURE [None]
  - HYPOSPADIAS [None]
